FAERS Safety Report 5806041-1 (Version None)
Quarter: 2008Q3

REPORT INFORMATION
  Report Type: 
  Country: None (occurrence: None)
  Receive Date: 20080710
  Receipt Date: 20080707
  Transmission Date: 20090109
  Serious: Yes (Life-Threatening)
  Sender: FDA-Public Use
  Company Number: GB-ASTRAZENECA-2008GB01277

PATIENT
  Age: 21 Year
  Sex: Female
  Weight: 61 kg

DRUGS (4)
  1. PULMICORT-100 [Suspect]
     Indication: ASTHMA
     Route: 055
     Dates: start: 20080617, end: 20080617
  2. LORATADINE [Concomitant]
     Indication: SEASONAL ALLERGY
     Dosage: 10MG
     Route: 048
     Dates: start: 20080501
  3. LYMECYCLINE [Concomitant]
     Indication: ACNE
     Route: 048
     Dates: start: 20080128, end: 20080301
  4. SUDAFED 12 HOUR [Concomitant]
     Route: 048
     Dates: start: 20080617

REACTIONS (1)
  - ANAPHYLACTIC REACTION [None]
